FAERS Safety Report 4636591-5 (Version None)
Quarter: 2005Q2

REPORT INFORMATION
  Report Type: 
  Country: None (occurrence: None)
  Receive Date: 20050325
  Receipt Date: 20050119
  Transmission Date: 20051028
  Serious: No
  Sender: FDA-Public Use
  Company Number: USA040465763

PATIENT
  Age: 75 Year
  Sex: Female

DRUGS (3)
  1. FORTEO [Suspect]
     Indication: OSTEOPOROSIS
     Dosage: 20 UG IN THE EVENING
     Dates: start: 20040301
  2. ZOCOR (SIMVASTATIN RATIOPHARM) [Concomitant]
  3. CALCIUM CARBONATE [Concomitant]

REACTIONS (6)
  - ABDOMINAL PAIN UPPER [None]
  - CONSTIPATION [None]
  - CYSTITIS [None]
  - INCREASED TENDENCY TO BRUISE [None]
  - IRRITABILITY [None]
  - RASH ERYTHEMATOUS [None]
